FAERS Safety Report 7361945-6 (Version None)
Quarter: 2011Q1

REPORT INFORMATION
  Report Type: 
  Country: None (occurrence: None)
  Receive Date: 20110318
  Receipt Date: 20110307
  Transmission Date: 20110831
  Serious: Yes (Hospitalization)
  Sender: FDA-Public Use
  Company Number: PHHY2011TR19355

PATIENT
  Age: 56 Year
  Sex: Female

DRUGS (2)
  1. FLUOROURACIL [Suspect]
     Indication: COLON CANCER METASTATIC
  2. CALCIUM FOLINATE [Concomitant]
     Indication: COLON CANCER METASTATIC

REACTIONS (5)
  - OPHTHALMOPLEGIA [None]
  - EPILEPSY [None]
  - WERNICKE'S ENCEPHALOPATHY [None]
  - LOSS OF CONSCIOUSNESS [None]
  - DISORIENTATION [None]
